FAERS Safety Report 12537801 (Version 4)
Quarter: 2018Q1

REPORT INFORMATION
  Report Type: Report from Study
  Country: US (occurrence: US)
  Receive Date: 20160707
  Receipt Date: 20180111
  Transmission Date: 20180508
  Serious: Yes (Other)
  Sender: FDA-Public Use
  Company Number: US-SAOL THERAPEUTICS-2016SAO00096

PATIENT
  Age: 44 Year
  Sex: Female

DRUGS (27)
  1. CLONIDINE. [Suspect]
     Active Substance: CLONIDINE
     Dosage: 67.40 ?G, \DAY
     Route: 037
     Dates: start: 20170125
  2. COMPOUNDED BACLOFEN [Suspect]
     Active Substance: BACLOFEN
     Indication: PAIN
     Dosage: 133.48 ?G, \DAY
     Route: 037
     Dates: start: 20150203
  3. CLONIDINE. [Suspect]
     Active Substance: CLONIDINE
     Dosage: 74.75 ?G, \DAY
     Route: 037
     Dates: start: 20150203
  4. MORPHINE SULFATE ER [Concomitant]
     Active Substance: MORPHINE SULFATE
  5. CLONIDINE. [Suspect]
     Active Substance: CLONIDINE
     Dosage: 159.66 ?G, \DAY
     Route: 037
     Dates: start: 20150203
  6. DILAUDID [Suspect]
     Active Substance: HYDROMORPHONE HYDROCHLORIDE
     Dosage: 1.601 MG, \DAY
     Route: 037
     Dates: start: 20150203
  7. BACLOFEN. [Suspect]
     Active Substance: BACLOFEN
     Dosage: 146.72 ?G, \DAY
     Route: 037
     Dates: start: 20160310
  8. COMPOUNDED BACLOFEN [Suspect]
     Active Substance: BACLOFEN
     Indication: PAIN
     Dosage: 206.49 ?G, \DAY
     Route: 037
     Dates: start: 20170125, end: 20170330
  9. BUPIVACAINE. [Suspect]
     Active Substance: BUPIVACAINE
     Dosage: 6.740 MG, \DAY
     Route: 037
     Dates: start: 20170125
  10. BUPIVACAINE. [Suspect]
     Active Substance: BUPIVACAINE
     Dosage: 12.665 MG, \DAY - MAX
     Route: 037
     Dates: start: 20170330
  11. COMPOUNDED BACLOFEN [Suspect]
     Active Substance: BACLOFEN
     Indication: PAIN
     Dosage: 285.10 ?G, \DAY
     Route: 037
     Dates: start: 20150203
  12. COMPOUNDED BACLOFEN [Suspect]
     Active Substance: BACLOFEN
     Dosage: 146.72 ?G, \DAY
     Route: 037
     Dates: start: 20160310
  13. DILAUDID [Suspect]
     Active Substance: HYDROMORPHONE HYDROCHLORIDE
     Dosage: 1.348 MG, \DAY
     Route: 037
     Dates: start: 20170125
  14. BUPIVACAINE. [Suspect]
     Active Substance: BUPIVACAINE
     Dosage: 7.475 MG, \DAY
     Route: 037
     Dates: start: 20150203
  15. BUPIVACAINE. [Suspect]
     Active Substance: BUPIVACAINE
     Dosage: 8.217 MG, \DAY
     Route: 037
     Dates: start: 20160310
  16. DILAUDID [Suspect]
     Active Substance: HYDROMORPHONE HYDROCHLORIDE
     Dosage: 2.2943 MG, \DAY
     Route: 037
     Dates: start: 20170125, end: 20170330
  17. DILAUDID [Suspect]
     Active Substance: HYDROMORPHONE HYDROCHLORIDE
     Dosage: 2.533 MG, \DAY - MAX
     Route: 037
     Dates: start: 20170330
  18. BUPIVACAINE. [Suspect]
     Active Substance: BUPIVACAINE
     Dosage: 15.966 MG, \DAY
     Route: 037
     Dates: start: 20150203
  19. MORPHINE SULFATE IR [Concomitant]
     Active Substance: MORPHINE SULFATE
  20. BUPIVACAINE. [Suspect]
     Active Substance: BUPIVACAINE
     Dosage: 11.472 MG, \DAY
     Route: 037
     Dates: start: 20170125, end: 20170330
  21. CLONIDINE. [Suspect]
     Active Substance: CLONIDINE
     Dosage: 82.17 ?G, \DAY
     Route: 037
     Dates: start: 20160310
  22. DILAUDID [Suspect]
     Active Substance: HYDROMORPHONE HYDROCHLORIDE
     Dosage: 3.4213 MG, \DAY
     Route: 037
     Dates: start: 20150203
  23. DILAUDID [Suspect]
     Active Substance: HYDROMORPHONE HYDROCHLORIDE
     Dosage: 1.760 MG, \DAY
     Route: 037
     Dates: start: 20160310
  24. CLONIDINE. [Suspect]
     Active Substance: CLONIDINE
     Dosage: 114.72 ?G, \DAY
     Route: 037
     Dates: start: 20170125, end: 20170330
  25. COMPOUNDED BACLOFEN [Suspect]
     Active Substance: BACLOFEN
     Indication: PAIN
     Dosage: 121.33 ?G, \DAY
     Route: 037
     Dates: start: 20170125
  26. COMPOUNDED BACLOFEN [Suspect]
     Active Substance: BACLOFEN
     Dosage: 227.97 ?G, \DAY - MAX
     Route: 037
     Dates: start: 20170330
  27. CLONIDINE. [Suspect]
     Active Substance: CLONIDINE
     Dosage: 126.65 ?G, \DAY - MAX
     Route: 037
     Dates: start: 20170330

REACTIONS (5)
  - Catheter site pain [Recovered/Resolved]
  - Product deposit [Unknown]
  - Device leakage [Unknown]
  - Hypoaesthesia [Recovered/Resolved]
  - Off label use [Unknown]

NARRATIVE: CASE EVENT DATE: 20151208
